FAERS Safety Report 5832507-4 (Version None)
Quarter: 2008Q3

REPORT INFORMATION
  Report Type: 
  Country: None (occurrence: None)
  Receive Date: 20080730
  Receipt Date: 20080717
  Transmission Date: 20090109
  Serious: Yes (Disabling)
  Sender: FDA-Public Use
  Company Number: 2008BI017570

PATIENT
  Age: 60 Year
  Sex: Female

DRUGS (18)
  1. TYSABRI [Suspect]
     Indication: MULTIPLE SCLEROSIS
     Dosage: 300 MG;QM;IV
     Route: 042
     Dates: start: 20071102
  2. ILEX-ONE [Concomitant]
  3. AQUAMEN FORTE [Concomitant]
  4. BISOHEXAL [Concomitant]
  5. PANTOZOL [Concomitant]
  6. CYTOTEC [Concomitant]
  7. DRIDASE [Concomitant]
  8. PLAVIX [Concomitant]
  9. SIMVAHEXAL [Concomitant]
  10. CARBAMAZEPINE [Concomitant]
  11. LIORESAL [Concomitant]
  12. IBUPROFEN [Concomitant]
  13. PREDNISONE TAB [Concomitant]
  14. EDRONEX [Concomitant]
  15. NEURONTIN [Concomitant]
  16. AVONEX [Concomitant]
  17. NOVANTRONE [Concomitant]
  18. REBIF [Concomitant]

REACTIONS (10)
  - BRONCHITIS [None]
  - DISEASE PROGRESSION [None]
  - FALL [None]
  - FEMORAL NECK FRACTURE [None]
  - IMPAIRED HEALING [None]
  - MULTIPLE SCLEROSIS [None]
  - NASOPHARYNGITIS [None]
  - OEDEMA PERIPHERAL [None]
  - OSTEOPOROSIS [None]
  - RAYNAUD'S PHENOMENON [None]
